FAERS Safety Report 4622714-0 (Version None)
Quarter: 2005Q1

REPORT INFORMATION
  Report Type: 
  Country: None (occurrence: None)
  Receive Date: 20050329
  Receipt Date: 20050329
  Transmission Date: 20050727
  Serious: Yes (Disabling)
  Sender: FDA-Public Use
  Company Number: None

PATIENT
  Age: 55 Year
  Sex: Male
  Weight: 72.5755 kg

DRUGS (2)
  1. GENTAMICIN [Suspect]
     Indication: ENTEROBACTER INFECTION
     Dosage: 280ML/DOSE ONE DOSE/DAY INTRAVENOUS
     Route: 042
     Dates: start: 20041215, end: 20050120
  2. GENTAMICIN [Suspect]
     Indication: STAPHYLOCOCCAL INFECTION
     Dosage: 280ML/DOSE ONE DOSE/DAY INTRAVENOUS
     Route: 042
     Dates: start: 20041215, end: 20050120

REACTIONS (4)
  - BALANCE DISORDER [None]
  - DRUG TOXICITY [None]
  - VESTIBULAR NEURONITIS [None]
  - VISUAL DISTURBANCE [None]
